FAERS Safety Report 10154650 (Version 3)
Quarter: 2014Q3

REPORT INFORMATION
  Report Type: Report from Study
  Country: KR (occurrence: KR)
  Receive Date: 20140506
  Receipt Date: 20140710
  Transmission Date: 20150326
  Serious: Yes (Life-Threatening, Hospitalization)
  Sender: FDA-Public Use
  Company Number: KR-BAYER-2014-066565

PATIENT
  Age: 64 Year
  Sex: Male
  Weight: 62.9 kg

DRUGS (6)
  1. SORAFENIB (RAF KINASE INHIBITOR) [Suspect]
     Active Substance: SORAFENIB
     Indication: HEPATOCELLULAR CARCINOMA
     Dosage: 400 MG, BID
     Route: 048
     Dates: start: 20131119, end: 20140425
  2. PARACETAMOL [Concomitant]
     Active Substance: ACETAMINOPHEN
  3. AMARYL M [Concomitant]
     Active Substance: GLIMEPIRIDE\METFORMIN
  4. ROXITHROMYCIN [Concomitant]
     Active Substance: ROXITHROMYCIN
  5. COUGH SYRUP [Concomitant]
     Active Substance: DEXTROMETHORPHAN HYDROBROMIDE\GUAIFENESIN
  6. MEGACE ORAL [Concomitant]

REACTIONS (4)
  - Arterial thrombosis [Not Recovered/Not Resolved]
  - Carotid artery occlusion [Not Recovered/Not Resolved]
  - Cerebral infarction [Not Recovered/Not Resolved]
  - Pneumonia [Not Recovered/Not Resolved]

NARRATIVE: CASE EVENT DATE: 20140423
